FAERS Safety Report 6653039-X (Version None)
Quarter: 2010Q1

REPORT INFORMATION
  Report Type: 
  Country: None (occurrence: None)
  Receive Date: 20100326
  Receipt Date: 20100316
  Transmission Date: 20100710
  Serious: Yes (Other)
  Sender: FDA-Public Use
  Company Number: PHHY2010NL15638

PATIENT
  Sex: Male

DRUGS (10)
  1. ZOMETA [Suspect]
     Dosage: 4 MG/ 5 ML
     Route: 042
     Dates: start: 20090617
  2. ZOMETA [Suspect]
     Dosage: 4 MG/ 5 ML
     Dates: start: 20090714
  3. ZOMETA [Suspect]
     Dosage: 4 MG/ 5 ML
     Dates: start: 20090812
  4. ZOMETA [Suspect]
     Dosage: 4 MG/ 5 ML
     Dates: start: 20090907
  5. ZOMETA [Suspect]
     Dosage: 4 MG/ 5 ML
     Dates: start: 20091007
  6. ZOMETA [Suspect]
     Dosage: 4 MG/ 5 ML
     Dates: start: 20091103
  7. ZOMETA [Suspect]
     Dosage: 4 MG/ 5 ML
     Dates: start: 20091201
  8. ZOMETA [Suspect]
     Dosage: 4 MG/ 5 ML
     Dates: start: 20091228
  9. ZOMETA [Suspect]
     Dosage: 4 MG/ 5 ML
     Dates: start: 20100127
  10. ZOMETA [Suspect]
     Dosage: 4 MG/ 5 ML
     Dates: start: 20100225

REACTIONS (3)
  - BEDRIDDEN [None]
  - MALAISE [None]
  - TERMINAL STATE [None]
